FAERS Safety Report 5660011-5 (Version None)
Quarter: 2008Q1

REPORT INFORMATION
  Report Type: 
  Country: None (occurrence: None)
  Receive Date: 20080311
  Receipt Date: 20070827
  Transmission Date: 20080703
  Serious: No
  Sender: FDA-Public Use
  Company Number: US-BAYER-200712771BCC

PATIENT
  Age: 88 Year
  Sex: Female
  Weight: 75 kg

DRUGS (5)
  1. ALEVE [Suspect]
     Indication: ARTHRALGIA
     Dosage: TOTAL DAILY DOSE: 220 MG  UNIT DOSE: 220 MG
     Route: 048
     Dates: start: 20070823
  2. TWO ALLERGY PILLS [Concomitant]
  3. HIGH BLOOD PRESSURE MEDICATION [Concomitant]
  4. PLAVIX [Concomitant]
  5. NORVASC [Concomitant]

REACTIONS (2)
  - ERYTHEMA [None]
  - PRURITUS [None]
